FAERS Safety Report 8173976-7 (Version None)
Quarter: 2012Q1

REPORT INFORMATION
  Report Type: 
  Country: None (occurrence: None)
  Receive Date: 20120224
  Receipt Date: 20120213
  Transmission Date: 20120608
  Serious: Yes (Hospitalization)
  Sender: FDA-Public Use
  Company Number: 1000028406

PATIENT
  Age: 59 Year
  Sex: Female
  Weight: 39 kg

DRUGS (12)
  1. RISPERDAL [Suspect]
     Dosage: 1;0.5 ML (1;0.5 ML, 1 IN 1 D), ORAL
     Route: 048
     Dates: start: 20111114, end: 20111129
  2. RISPERDAL [Suspect]
     Dosage: 1;0.5 ML (1;0.5 ML, 1 IN 1 D), ORAL
     Route: 048
     Dates: start: 20111130, end: 20111204
  3. RISPERDAL [Suspect]
     Dosage: 1;0.5 ML (1;0.5 ML, 1 IN 1 D), ORAL
     Route: 048
     Dates: start: 20111205, end: 20120131
  4. RISPERDAL [Suspect]
     Dosage: 1;0.5 ML (1;0.5 ML, 1 IN 1 D), ORAL
     Route: 048
     Dates: start: 20111021, end: 20111113
  5. ENSURE LIQUID (ENSURE /06184901/) [Concomitant]
  6. JZOLOFT (SETRTRALINE HYDROCHLORIDE) [Concomitant]
  7. MAGMITT (MAGNESIUM OXIDE) [Concomitant]
  8. SENNOSIDE (SENNOSIDE A+B) [Concomitant]
  9. LEXAPRO [Suspect]
     Indication: DEPRESSION
     Dosage: 10;20 MG (10;20 MG, 1 IN 1 D), ORAL
     Route: 048
     Dates: start: 20111228, end: 20120124
  10. LEXAPRO [Suspect]
     Indication: DEPRESSION
     Dosage: 10;20 MG (10;20 MG, 1 IN 1 D), ORAL
     Route: 048
     Dates: start: 20111221, end: 20111227
  11. LEXAPRO [Suspect]
     Indication: DEPRESSION
     Dosage: 10 MG (10 MG, 1 IN 1 D), ORAL
     Route: 048
     Dates: start: 20120125, end: 20120131
  12. GASMOTIN (MOSAPRIDE CITRATE) [Concomitant]

REACTIONS (6)
  - BLOOD LACTATE DEHYDROGENASE INCREASED [None]
  - LIVER DISORDER [None]
  - ALANINE AMINOTRANSFERASE INCREASED [None]
  - ASPARTATE AMINOTRANSFERASE INCREASED [None]
  - CONDITION AGGRAVATED [None]
  - GAMMA-GLUTAMYLTRANSFERASE INCREASED [None]
